FAERS Safety Report 6543693-5 (Version None)
Quarter: 2010Q1

REPORT INFORMATION
  Report Type: 
  Country: None (occurrence: None)
  Receive Date: 20100120
  Receipt Date: 20100119
  Transmission Date: 20100710
  Serious: Yes (Other)
  Sender: FDA-Public Use
  Company Number: US-ABBOTT-10P-163-0618616-00

PATIENT
  Sex: Female
  Weight: 102.15 kg

DRUGS (5)
  1. NIASPAN [Suspect]
     Indication: BLOOD CHOLESTEROL INCREASED
     Route: 048
     Dates: start: 20090601, end: 20100108
  2. BYSTOLIC [Concomitant]
     Indication: ARRHYTHMIA
     Route: 048
  3. BYSTOLIC [Concomitant]
     Indication: HYPERTENSION
  4. ZOCOR [Concomitant]
     Indication: BLOOD CHOLESTEROL INCREASED
     Route: 048
  5. ASPIRIN [Concomitant]
     Indication: PROPHYLAXIS
     Route: 048
     Dates: start: 20090601

REACTIONS (15)
  - ABDOMINAL PAIN UPPER [None]
  - CHEST DISCOMFORT [None]
  - DYSARTHRIA [None]
  - DYSPHAGIA [None]
  - DYSPNOEA [None]
  - FACIAL PALSY [None]
  - FEELING HOT [None]
  - FLUSHING [None]
  - OEDEMA PERIPHERAL [None]
  - PARAESTHESIA [None]
  - PHARYNGEAL OEDEMA [None]
  - PRURITUS [None]
  - SKIN DISCOLOURATION [None]
  - SKIN TURGOR DECREASED [None]
  - SWELLING FACE [None]
